FAERS Safety Report 8081090-4 (Version None)
Quarter: 2012Q1

REPORT INFORMATION
  Report Type: 
  Country: None (occurrence: None)
  Receive Date: 20120130
  Receipt Date: 20120123
  Transmission Date: 20120608
  Serious: Yes (Hospitalization)
  Sender: FDA-Public Use
  Company Number: US-ABBOTT-12P-163-0896841-00

PATIENT
  Sex: Male

DRUGS (5)
  1. NIASPAN [Suspect]
     Dosage: 2 TABLETS
     Route: 048
  2. NIASPAN [Suspect]
     Indication: BLOOD CHOLESTEROL INCREASED
     Route: 048
     Dates: start: 20120101
  3. TRILIPIX [Concomitant]
     Indication: BLOOD TRIGLYCERIDES INCREASED
  4. TRILIPIX [Concomitant]
     Indication: PRODUCT USED FOR UNKNOWN INDICATION
  5. NIASPAN [Suspect]
     Dosage: INCREASED
     Route: 048

REACTIONS (9)
  - FLUSHING [None]
  - BLOOD TRIGLYCERIDES ABNORMAL [None]
  - HIGH DENSITY LIPOPROTEIN ABNORMAL [None]
  - INTESTINAL PERFORATION [None]
  - FEELING HOT [None]
  - DRUG INEFFECTIVE [None]
  - PYREXIA [None]
  - RASH ERYTHEMATOUS [None]
  - BLOOD CHOLESTEROL ABNORMAL [None]
